FAERS Safety Report 5565755-1 (Version None)
Quarter: 2007Q4

REPORT INFORMATION
  Report Type: 
  Country: None (occurrence: None)
  Receive Date: 20071218
  Receipt Date: 20070516
  Transmission Date: 20080405
  Serious: Yes (Other)
  Sender: FDA-Public Use
  Company Number: BE-MERCK-0703BEL00019M

PATIENT
  Age: 32 Year
  Sex: Female
  Weight: 46 kg

DRUGS (1)
  1. PROSCAR [Suspect]
     Dates: start: 20070301, end: 20070301

REACTIONS (3)
  - ABORTION INDUCED [None]
  - DRUG EXPOSURE DURING PREGNANCY [None]
  - NO ADVERSE REACTION [None]
